FAERS Safety Report 4299740-7 (Version None)
Quarter: 2004Q1

REPORT INFORMATION
  Report Type: 
  Country: None (occurrence: None)
  Receive Date: 20040126
  Receipt Date: 20031112
  Transmission Date: 20041129
  Serious: No
  Sender: FDA-Public Use
  Company Number: USA031152399

PATIENT
  Age: 48 Year
  Sex: Female

DRUGS (1)
  1. STRATTERA [Suspect]
     Indication: BIPOLAR DISORDER
     Dosage: 50MG/DAY
     Dates: start: 20031001

REACTIONS (2)
  - FEELING ABNORMAL [None]
  - NAUSEA [None]
